FAERS Safety Report 20197453 (Version 1)
Quarter: 2021Q4

REPORT INFORMATION
  Report Type: Spontaneous
  Country: US (occurrence: US)
  Receive Date: 20211217
  Receipt Date: 20211217
  Transmission Date: 20220303
  Serious: No
  Sender: FDA-Public Use
  Company Number: US-PACIRA-2020000572

PATIENT
  Age: 50 Year

DRUGS (1)
  1. EXPAREL [Suspect]
     Active Substance: BUPIVACAINE
     Dosage: NOT PROVIDED
     Route: 065

REACTIONS (3)
  - Throat tightness [Unknown]
  - Off label use [Unknown]
  - Muscular weakness [Unknown]
